FAERS Safety Report 12921520 (Version 2)
Quarter: 2017Q1

REPORT INFORMATION
  Report Type: Report from Study
  Country: IT (occurrence: IT)
  Receive Date: 20161108
  Receipt Date: 20170118
  Transmission Date: 20170428
  Serious: Yes (Hospitalization, Other)
  Sender: FDA-Public Use
  Company Number: IT-INCYTE CORPORATION-2016IN005186

PATIENT
  Age: 51 Year
  Sex: Male
  Weight: 68 kg

DRUGS (3)
  1. JAKAVI [Suspect]
     Active Substance: RUXOLITINIB
     Indication: MYELOFIBROSIS
     Dosage: 20 MG, BID
     Route: 048
     Dates: start: 20150206, end: 20160507
  2. CITARABIN [Concomitant]
     Indication: CHEMOTHERAPY
     Dosage: 185 MG, BID
     Route: 065
     Dates: start: 20160506, end: 20160512
  3. IDARUBICINE [Concomitant]
     Active Substance: IDARUBICIN
     Indication: CHEMOTHERAPY
     Dosage: 22 MG, UNK
     Route: 065
     Dates: start: 20160506, end: 20160508

REACTIONS (3)
  - Acute myeloid leukaemia [Not Recovered/Not Resolved]
  - Thrombocytopenia [Unknown]
  - Haemoglobin decreased [Unknown]

NARRATIVE: CASE EVENT DATE: 20160428
